FAERS Safety Report 21715850 (Version 2)
Quarter: 2022Q4

REPORT INFORMATION
  Report Type: Spontaneous
  Country: US (occurrence: US)
  Receive Date: 20221212
  Receipt Date: 20221216
  Transmission Date: 20230113
  Serious: Yes (Other)
  Sender: FDA-Public Use
  Company Number: US-PFIZER INC-202201361121

PATIENT
  Age: 60 Year
  Sex: Male
  Weight: 72.57 kg

DRUGS (8)
  1. PAXLOVID [Suspect]
     Active Substance: NIRMATRELVIR\RITONAVIR
     Indication: COVID-19 treatment
     Dosage: UNK
     Dates: start: 20221205
  2. FLONASE [Concomitant]
     Active Substance: FLUTICASONE PROPIONATE
  3. PRALUENT [Concomitant]
     Active Substance: ALIROCUMAB
     Dosage: UNK
  4. ASPIRIN [Concomitant]
     Active Substance: ASPIRIN
     Dosage: UNK
  5. DOCONEXENT\ICOSAPENT [Concomitant]
     Active Substance: DOCONEXENT\ICOSAPENT
  6. PYRIDOSTIGMINE [Concomitant]
     Active Substance: PYRIDOSTIGMINE
  7. LEVALBUTEROL [Concomitant]
     Active Substance: LEVALBUTEROL
     Dosage: UNK
  8. ALIROCUMAB [Concomitant]
     Active Substance: ALIROCUMAB
     Dosage: UNK (I TAKE IVIG, ALIROCUMAB IMMUNE GLOBULIN INTRAVENOUS)
     Route: 042

REACTIONS (8)
  - Blindness transient [Recovered/Resolved]
  - Visual impairment [Recovered/Resolved]
  - Cardiac failure [Unknown]
  - Facial bones fracture [Unknown]
  - Chest pain [Unknown]
  - Coronary artery disease [Unknown]
  - Epistaxis [Recovered/Resolved]
  - Oxygen saturation decreased [Unknown]

NARRATIVE: CASE EVENT DATE: 20221206
